FAERS Safety Report 23388097 (Version 1)
Quarter: 2024Q1

REPORT INFORMATION
  Report Type: Spontaneous
  Country: US (occurrence: None)
  Receive Date: 20240110
  Receipt Date: 20240110
  Transmission Date: 20240410
  Serious: Yes (Other)
  Sender: FDA-Public Use
  Company Number: 2024A002151

PATIENT

DRUGS (2)
  1. BRILINTA [Suspect]
     Active Substance: TICAGRELOR
     Route: 048
     Dates: start: 20230208
  2. ASPIRIN [Concomitant]
     Active Substance: ASPIRIN

REACTIONS (10)
  - Transient ischaemic attack [Unknown]
  - Dysarthria [Unknown]
  - Limb discomfort [Unknown]
  - Gait disturbance [Unknown]
  - Confusional state [Unknown]
  - Asthenia [Unknown]
  - Fatigue [Unknown]
  - Brain fog [Unknown]
  - Glassy eyes [Unknown]
  - Product use issue [Unknown]

NARRATIVE: CASE EVENT DATE: 20230801
